FAERS Safety Report 16246637 (Version 1)
Quarter: 2019Q2

REPORT INFORMATION
  Report Type: Spontaneous
  Country: CA (occurrence: CA)
  Receive Date: 20190427
  Receipt Date: 20190427
  Transmission Date: 20190711
  Serious: Yes (Hospitalization, Other)
  Sender: FDA-Public Use
  Company Number: CA-ROCHE-2307014

PATIENT
  Age: 63 Year
  Sex: Female
  Weight: 95 kg

DRUGS (21)
  1. XOLAIR [Suspect]
     Active Substance: OMALIZUMAB
     Route: 058
     Dates: start: 20160512, end: 20160512
  2. PREDNISONE. [Suspect]
     Active Substance: PREDNISONE
     Indication: WHEEZING
     Route: 065
  3. CLONAZEPAM. [Concomitant]
     Active Substance: CLONAZEPAM
     Indication: SEIZURE
     Route: 048
     Dates: start: 2011
  4. VENTOLIN [Concomitant]
     Active Substance: ALBUTEROL SULFATE
     Indication: DYSPNOEA
     Route: 065
     Dates: start: 2016
  5. LEVOFLOXACIN. [Concomitant]
     Active Substance: LEVOFLOXACIN
  6. VENTOLIN [Concomitant]
     Active Substance: ALBUTEROL SULFATE
     Indication: ASTHMA
     Route: 055
  7. TUDORZA GENUAIR [Concomitant]
     Active Substance: ACLIDINIUM BROMIDE
     Indication: ASTHMA
     Route: 055
     Dates: start: 201704
  8. XOLAIR [Suspect]
     Active Substance: OMALIZUMAB
     Route: 058
     Dates: start: 20160331
  9. PREDNISONE. [Suspect]
     Active Substance: PREDNISONE
     Indication: DYSPNOEA
     Route: 065
     Dates: start: 20160502
  10. SYMBICORT [Concomitant]
     Active Substance: BUDESONIDE\FORMOTEROL FUMARATE DIHYDRATE
     Dosage: DOSE INCREASED (SIX TIMES A DAY)
     Route: 065
  11. SALBUTAMOL [Concomitant]
     Active Substance: ALBUTEROL
     Indication: PRODUCT USED FOR UNKNOWN INDICATION
     Route: 065
  12. XOLAIR [Suspect]
     Active Substance: OMALIZUMAB
     Route: 058
     Dates: start: 20160414
  13. XOLAIR [Suspect]
     Active Substance: OMALIZUMAB
     Route: 058
     Dates: start: 20181010
  14. SYMBICORT [Concomitant]
     Active Substance: BUDESONIDE\FORMOTEROL FUMARATE DIHYDRATE
     Indication: ASTHMA
     Route: 055
     Dates: start: 2014
  15. TUDORZA GENUAIR [Concomitant]
     Active Substance: ACLIDINIUM BROMIDE
     Indication: WHEEZING
  16. PREDNISONE. [Suspect]
     Active Substance: PREDNISONE
     Indication: ASTHMA
     Route: 048
     Dates: start: 2015
  17. XOLAIR [Suspect]
     Active Substance: OMALIZUMAB
     Indication: ASTHMA
     Route: 058
     Dates: start: 20150722
  18. XOLAIR [Suspect]
     Active Substance: OMALIZUMAB
     Route: 058
     Dates: start: 20160428
  19. PREDNISONE. [Suspect]
     Active Substance: PREDNISONE
     Indication: BRONCHOSPASM
     Dosage: 50 MG, (FOR 5 DAYS)
     Route: 065
     Dates: start: 20160212
  20. IMURAN [Concomitant]
     Active Substance: AZATHIOPRINE
     Indication: PRODUCT USED FOR UNKNOWN INDICATION
     Route: 065
  21. XOLAIR [Suspect]
     Active Substance: OMALIZUMAB
     Route: 058
     Dates: start: 20150819

REACTIONS (30)
  - Eosinophil count increased [Unknown]
  - Cold sweat [Unknown]
  - Bronchospasm [Unknown]
  - Influenza like illness [Unknown]
  - Malaise [Unknown]
  - Pyrexia [Unknown]
  - Choking [Unknown]
  - Cough [Unknown]
  - Neutrophil count increased [Unknown]
  - Pruritus [Unknown]
  - Breast cancer female [Unknown]
  - Asthma [Unknown]
  - Conjunctivitis allergic [Unknown]
  - Middle insomnia [Unknown]
  - Dyspnoea [Unknown]
  - Secretion discharge [Unknown]
  - Pain in extremity [Unknown]
  - Drug ineffective [Unknown]
  - Forced expiratory volume decreased [Not Recovered/Not Resolved]
  - Temperature intolerance [Recovered/Resolved]
  - Fatigue [Unknown]
  - Eczema [Not Recovered/Not Resolved]
  - Pneumonia [Unknown]
  - Nausea [Recovered/Resolved]
  - Use of accessory respiratory muscles [Unknown]
  - Rhinitis [Unknown]
  - Sinusitis [Unknown]
  - Blood pressure systolic increased [Unknown]
  - Nasopharyngitis [Unknown]
  - Wheezing [Unknown]

NARRATIVE: CASE EVENT DATE: 2015
